FAERS Safety Report 19292639 (Version 5)
Quarter: 2021Q3

REPORT INFORMATION
  Report Type: Spontaneous
  Country: FR (occurrence: FR)
  Receive Date: 20210524
  Receipt Date: 20210707
  Transmission Date: 20211014
  Serious: Yes (Hospitalization, Other)
  Sender: FDA-Public Use
  Company Number: FR-AUROBINDO-AUR-APL-2021-020781

PATIENT
  Age: 16 Year
  Sex: Female

DRUGS (1)
  1. AMOXICILLIN. [Suspect]
     Active Substance: AMOXICILLIN
     Indication: TOOTH ABSCESS
     Dosage: UNK
     Route: 065

REACTIONS (3)
  - Hypoxia [Recovered/Resolved]
  - Eosinophilic pneumonia acute [Recovered/Resolved]
  - Interstitial lung disease [Recovering/Resolving]
